FAERS Safety Report 10662810 (Version 1)
Quarter: 2014Q4

REPORT INFORMATION
  Report Type: Spontaneous
  Country: JM (occurrence: JM)
  Receive Date: 20141218
  Receipt Date: 20141218
  Transmission Date: 20150529
  Serious: Yes (Death, Hospitalization)
  Sender: FDA-Public Use
  Company Number: JM-WATSON-2014-26666

PATIENT
  Age: 22 Year
  Sex: Female

DRUGS (1)
  1. CLINDAMYCIN (UNKNOWN) [Suspect]
     Active Substance: CLINDAMYCIN\CLINDAMYCIN PHOSPHATE
     Indication: TOOTH ABSCESS
     Dosage: UNK
     Route: 065

REACTIONS (4)
  - Megacolon [Fatal]
  - Klebsiella sepsis [Fatal]
  - Large intestine perforation [Fatal]
  - Pseudomembranous colitis [Fatal]
